FAERS Safety Report 13987725 (Version 1)
Quarter: 2017Q3

REPORT INFORMATION
  Report Type: Spontaneous
  Country: FR (occurrence: FR)
  Receive Date: 20170919
  Receipt Date: 20170919
  Transmission Date: 20171128
  Serious: Yes (Death)
  Sender: FDA-Public Use
  Company Number: FR-TEVA-805505ROM

PATIENT
  Age: 83 Year
  Sex: Male

DRUGS (7)
  1. KARDEGIC [Concomitant]
     Active Substance: ASPIRIN LYSINE
     Dosage: 1 DOSAGE FORMS DAILY; TAKEN AT NOON
     Route: 048
  2. HYPERIUM 1 MG [Concomitant]
     Active Substance: RILMENIDINE PHOSPHATE
     Dosage: 1 DOSAGE FORMS DAILY; TAKEN IN THE EVENING
     Route: 048
  3. COAPROVEL [Concomitant]
     Active Substance: HYDROCHLOROTHIAZIDE\IRBESARTAN
     Dosage: DAILY DOSE: 1 DOSAGE FORM= 25 MG HYDROCHLOROTHIAZIDE + 300 MG IRBESARTAN. TAKEN IN THE EVENING
     Route: 048
  4. ZANIDIP 20 MG [Concomitant]
     Dosage: 1 DOSAGE FORMS DAILY; TAKEN IN THE EVENING
     Route: 048
  5. ATORVASTATIN 20 MG [Concomitant]
     Active Substance: ATORVASTATIN
     Dosage: 1 DOSAGE FORMS DAILY; TAKEN IN THE EVENING
     Route: 048
  6. BISOPROLOL TEVA SANTE 10 MG [Suspect]
     Active Substance: BISOPROLOL
     Indication: HYPERTENSION
     Dosage: 1 DOSAGE FORMS DAILY; TEXT TAKEN IN THE MORNING
     Route: 048
     Dates: start: 20170427, end: 20170619
  7. BISOPROLOL BIOGARAN 10 MG [Suspect]
     Active Substance: BISOPROLOL
     Indication: HYPERTENSION
     Route: 048
     Dates: start: 20170619

REACTIONS (3)
  - Product substitution issue [Unknown]
  - Myocardial infarction [Fatal]
  - Product physical issue [Unknown]

NARRATIVE: CASE EVENT DATE: 20170608
